FAERS Safety Report 4504318-3 (Version None)
Quarter: 2004Q4

REPORT INFORMATION
  Report Type: 
  Country: None (occurrence: None)
  Receive Date: 20041116
  Receipt Date: 20041101
  Transmission Date: 20050328
  Serious: Yes (Death, Life-Threatening, Other)
  Sender: FDA-Public Use
  Company Number: 2004-BP-11064BP

PATIENT
  Age: 22 Year
  Sex: Female

DRUGS (8)
  1. VIRAMUNE [Suspect]
     Indication: HIV INFECTION
     Dosage: (200 MG), PO
     Route: 048
     Dates: start: 20030801, end: 20031122
  2. VIRAMUNE [Suspect]
     Indication: HIV INFECTION
     Dosage: (200 MG), PO
     Route: 048
     Dates: start: 20040715, end: 20040929
  3. VIRAMUNE [Suspect]
     Indication: PROPHYLAXIS AGAINST HIV INFECTION
     Dosage: (NR, NEVER INITIATED SECONDARY TO HAART REGIMENT)
  4. METOCLOPRAMIDE [Concomitant]
  5. HYDROCHLOROTHIAZIDE [Concomitant]
  6. METRONIDAZOLE [Concomitant]
  7. LAMIVUDINE (LAMIVUDINE) [Concomitant]
  8. ZIDOVUDINE [Concomitant]

REACTIONS (6)
  - ABDOMINAL DISTENSION [None]
  - HEPATOMEGALY [None]
  - JAUNDICE [None]
  - OEDEMA PERIPHERAL [None]
  - TREATMENT NONCOMPLIANCE [None]
  - VOMITING [None]
